FAERS Safety Report 5024254-6 (Version None)
Quarter: 2006Q2

REPORT INFORMATION
  Report Type: 
  Country: None (occurrence: None)
  Receive Date: 20060426
  Receipt Date: 20060328
  Transmission Date: 20061013
  Serious: Yes (Other)
  Sender: FDA-Public Use
  Company Number: 2006043671

PATIENT
  Age: 60 Year
  Sex: Female
  Weight: 68.0396 kg

DRUGS (4)
  1. LYRICA [Suspect]
     Indication: HERPES ZOSTER
     Dosage: 2 IN 1 D
     Dates: start: 20060327
  2. PROZAC [Concomitant]
  3. NORVASC [Concomitant]
  4. PRAVACHOL [Concomitant]

REACTIONS (9)
  - DISTURBANCE IN ATTENTION [None]
  - DIZZINESS [None]
  - EXTRASYSTOLES [None]
  - FEELING ABNORMAL [None]
  - FEELING HOT [None]
  - PARAESTHESIA [None]
  - SKIN TIGHTNESS [None]
  - SOMNOLENCE [None]
  - VISION BLURRED [None]
